FAERS Safety Report 15259669 (Version 1)
Quarter: 2018Q3

REPORT INFORMATION
  Report Type: Spontaneous
  Country: GB (occurrence: GB)
  Receive Date: 20180809
  Receipt Date: 20180809
  Transmission Date: 20181010
  Serious: Yes (Other)
  Sender: FDA-Public Use
  Company Number: GB-PFIZER INC-2018312752

PATIENT
  Age: 64 Year
  Sex: Male
  Weight: 100 kg

DRUGS (15)
  1. INCRUSE ELLIPTA [Concomitant]
     Active Substance: UMECLIDINIUM BROMIDE
     Dosage: 1 DF, 1X/DAY
     Route: 055
     Dates: start: 20180122
  2. AMLODIPINE [Concomitant]
     Active Substance: AMLODIPINE BESYLATE
     Dosage: 1 DF, 1X/DAY
     Dates: start: 20170602
  3. ATORVASTATIN CALCIUM. [Suspect]
     Active Substance: ATORVASTATIN CALCIUM
     Dosage: UNK
     Dates: start: 20180619
  4. LANSOPRAZOLE. [Concomitant]
     Active Substance: LANSOPRAZOLE
     Dosage: 2 DF, 1X/DAY
     Dates: start: 20170926
  5. CARBOCISTEINE [Concomitant]
     Active Substance: CARBOCYSTEINE
     Dosage: 6 DF, 1X/DAY, IN THE MORNING, AT LUNCH AND IN THE EVENING.
     Dates: start: 20140625
  6. HYPROMELLOSE [Concomitant]
     Active Substance: HYPROMELLOSES
     Dosage: 1 GTT, AS NEEDED
     Dates: start: 20160603
  7. CO?AMOXICLAV /00756801/ [Concomitant]
     Active Substance: AMOXICILLIN\CLAVULANIC ACID
     Dosage: 3 DF, 1X/DAY (TO COMPLETE 14 DAY COURSE)
     Dates: start: 20180601, end: 20180615
  8. ALPHOSYL /00478801/ [Concomitant]
     Dosage: 1 DF, 1X/DAY
     Dates: start: 20180423, end: 20180424
  9. PREDNISOLONE. [Concomitant]
     Active Substance: PREDNISOLONE
     Dosage: 6 DF, 1X/DAY WITH FOOD
     Dates: start: 20180601, end: 20180606
  10. LAXIDO [Concomitant]
     Active Substance: POLYETHYLENE GLYCOL 3350\POTASSIUM CHLORIDE\SODIUM BICARBONATE\SODIUM CHLORIDE
     Dosage: 1 DF, ALTERNATE DAY (SACHET)
     Dates: start: 20180619
  11. HYDROCORTISONE. [Concomitant]
     Active Substance: HYDROCORTISONE
     Dosage: 2 DF, 1X/DAY, APPLY AS DIRECTED
     Dates: start: 20180423, end: 20180424
  12. FLUCONAZOLE. [Concomitant]
     Active Substance: FLUCONAZOLE
     Dosage: 1 DF, 1X/DAY (2 ON FIRST DAY, TOTAL 4 WEEK COURSE)
     Dates: start: 20180523, end: 20180620
  13. CO?CARELDOPA [Concomitant]
     Active Substance: CARBIDOPA\LEVODOPA
     Dosage: 6 DF, 1X/DAY (0800, 1300)
     Dates: start: 20171129
  14. RELVAR ELLIPTA [Concomitant]
     Active Substance: FLUTICASONE FUROATE\VILANTEROL TRIFENATATE
     Dosage: 1 DF, 1X/DAY (ALWAYS WASH YOUR MOUTH)
     Route: 055
     Dates: start: 20180122
  15. GAVISCON ADVANCE [Concomitant]
     Active Substance: POTASSIUM BICARBONATE\SODIUM ALGINATE
     Dosage: 5ML OR 10ML 4 TIMES/DAY, AFTER MEALS
     Dates: start: 20170911

REACTIONS (4)
  - Nasal discomfort [Recovering/Resolving]
  - Sleep disorder [Unknown]
  - Nasal crusting [Unknown]
  - Dizziness [Unknown]

NARRATIVE: CASE EVENT DATE: 20180619
